FAERS Safety Report 7816997-3 (Version None)
Quarter: 2011Q4

REPORT INFORMATION
  Report Type: 
  Country: None (occurrence: None)
  Receive Date: 20111017
  Receipt Date: 20111012
  Transmission Date: 20120403
  Serious: Yes (Death, Hospitalization, Other)
  Sender: FDA-Public Use
  Company Number: US-ELI_LILLY_AND_COMPANY-US201110003064

PATIENT
  Sex: Male

DRUGS (3)
  1. EFFIENT [Suspect]
     Indication: STENT PLACEMENT
     Dosage: 10 MG, QD
     Route: 047
     Dates: start: 20110110, end: 20110512
  2. ALCOHOL [Concomitant]
     Dosage: 14 UNK, UNK
  3. ASPIRIN [Concomitant]
     Dosage: UNK

REACTIONS (4)
  - HEMIPARESIS [None]
  - HAEMORRHAGE INTRACRANIAL [None]
  - DEATH [None]
  - HOSPICE CARE [None]
